FAERS Safety Report 5251037-4 (Version None)
Quarter: 2007Q1

REPORT INFORMATION
  Report Type: 
  Country: None (occurrence: None)
  Receive Date: 20070228
  Receipt Date: 20060814
  Transmission Date: 20070707
  Serious: No
  Sender: FDA-Public Use
  Company Number: US-GLAXOSMITHKLINE-A0616552A

PATIENT
  Age: 42 Year
  Sex: Female

DRUGS (4)
  1. LAMICTAL [Suspect]
     Indication: BIPOLAR DISORDER
     Dosage: 200MG PER DAY
     Route: 048
     Dates: start: 20060601
  2. SOMA [Concomitant]
  3. XANAX [Concomitant]
  4. KLONOPIN [Concomitant]

REACTIONS (15)
  - ANOREXIA [None]
  - DIZZINESS [None]
  - DYSPNOEA [None]
  - FATIGUE [None]
  - FEELING HOT [None]
  - HEADACHE [None]
  - INSOMNIA [None]
  - METRORRHAGIA [None]
  - MYALGIA [None]
  - NAUSEA [None]
  - POLLAKIURIA [None]
  - PRURITUS GENERALISED [None]
  - PYREXIA [None]
  - URINE OUTPUT INCREASED [None]
  - VISION BLURRED [None]
